FAERS Safety Report 16965529 (Version 1)
Quarter: 2019Q4

REPORT INFORMATION
  Report Type: Spontaneous
  Country: US (occurrence: US)
  Receive Date: 20191028
  Receipt Date: 20191028
  Transmission Date: 20200122
  Serious: Yes (Other)
  Sender: FDA-Public Use
  Company Number: US-BAYER-2019-192433

PATIENT
  Age: 57 Year
  Sex: Male

DRUGS (2)
  1. ACETYLSALICYLIC ACID (CARDIO) [Suspect]
     Active Substance: ASPIRIN
  2. TICAGRELOR. [Interacting]
     Active Substance: TICAGRELOR

REACTIONS (3)
  - Subarachnoid haemorrhage [None]
  - Labelled drug-drug interaction medication error [None]
  - Cerebral haemorrhage [None]
